FAERS Safety Report 8408406-0 (Version None)
Quarter: 2012Q2

REPORT INFORMATION
  Report Type: 
  Country: None (occurrence: None)
  Receive Date: 20120604
  Receipt Date: 20120521
  Transmission Date: 20120825
  Serious: No
  Sender: FDA-Public Use
  Company Number: US-ASTRAZENECA-2012SE19485

PATIENT
  Age: 52 Year
  Sex: Female

DRUGS (5)
  1. NEXIUM [Interacting]
     Route: 048
  2. CRESTOR [Suspect]
     Route: 048
  3. PRILOSEC [Interacting]
     Route: 048
  4. PRILOSEC OTC [Interacting]
     Route: 048
  5. BLOOD PRESSURE MEDICATION [Interacting]
     Indication: BLOOD PRESSURE ABNORMAL
     Route: 065

REACTIONS (12)
  - DRUG INTERACTION [None]
  - DISCOMFORT [None]
  - GASTRIC ULCER [None]
  - LIGAMENT SPRAIN [None]
  - DIARRHOEA [None]
  - CONSTIPATION [None]
  - ABDOMINAL PAIN UPPER [None]
  - DYSPEPSIA [None]
  - DRUG INEFFECTIVE [None]
  - GASTROINTESTINAL DISORDER [None]
  - FALL [None]
  - NAUSEA [None]
